FAERS Safety Report 8499253-2 (Version None)
Quarter: 2012Q3

REPORT INFORMATION
  Report Type: 
  Country: None (occurrence: None)
  Receive Date: 20120710
  Receipt Date: 20120704
  Transmission Date: 20120928
  Serious: Yes (Hospitalization)
  Sender: FDA-Public Use
  Company Number: PHHY2012BR058358

PATIENT
  Sex: Female

DRUGS (1)
  1. AMLODOPINE BESYLATE AND VALSARTAN [Suspect]
     Dosage: 320 MG VALS AND 5 MG AMLO

REACTIONS (5)
  - MUSCLE STRAIN [None]
  - LIMB INJURY [None]
  - HYPERTENSION [None]
  - ERYTHEMA [None]
  - OEDEMA PERIPHERAL [None]
